FAERS Safety Report 5068627-4 (Version None)
Quarter: 2006Q3

REPORT INFORMATION
  Report Type: 
  Country: None (occurrence: None)
  Receive Date: 20060802
  Receipt Date: 20060112
  Transmission Date: 20061208
  Serious: No
  Sender: FDA-Public Use
  Company Number: US-BRISTOL-MYERS SQUIBB COMPANY-13246012

PATIENT
  Age: 80 Year
  Sex: Female
  Weight: 49 kg

DRUGS (4)
  1. COUMADIN [Suspect]
     Indication: CEREBROVASCULAR ACCIDENT
  2. TOPROL-XL [Concomitant]
  3. CARDIZEM [Concomitant]
  4. VASOTEC [Concomitant]

REACTIONS (2)
  - NAUSEA [None]
  - RETCHING [None]
